FAERS Safety Report 21518921 (Version 2)
Quarter: 2022Q4

REPORT INFORMATION
  Report Type: Report from Study
  Country: US (occurrence: US)
  Receive Date: 20221028
  Receipt Date: 20221228
  Transmission Date: 20230113
  Serious: No
  Sender: FDA-Public Use
  Company Number: US-ABBVIE-4166718

PATIENT
  Sex: Male

DRUGS (2)
  1. IMBRUVICA [Suspect]
     Active Substance: IBRUTINIB
     Indication: Chronic lymphocytic leukaemia
     Dosage: LAST ADMIN DATE 2022-09
     Route: 048
     Dates: start: 20220916
  2. IMBRUVICA [Suspect]
     Active Substance: IBRUTINIB
     Indication: Chronic lymphocytic leukaemia
     Dosage: FIRST ADMIN DATE 2022-09?FORM STRENGTH: 280 MG
     Route: 048
     Dates: end: 202212

REACTIONS (9)
  - White blood cell count increased [Unknown]
  - Fatigue [Not Recovered/Not Resolved]
  - Headache [Unknown]
  - Hypersomnia [Unknown]
  - Asthenia [Unknown]
  - Memory impairment [Unknown]
  - Prostate infection [Unknown]
  - Renal impairment [Unknown]
  - Loss of personal independence in daily activities [Unknown]
